FAERS Safety Report 10738217 (Version 1)
Quarter: 2015Q1

REPORT INFORMATION
  Report Type: Spontaneous
  Country: US (occurrence: None)
  Receive Date: 20150122
  Receipt Date: 20150122
  Transmission Date: 20150721
  Serious: No
  Sender: FDA-Public Use
  Company Number: None

PATIENT
  Age: 81 Year
  Sex: Female
  Weight: 82.56 kg

DRUGS (1)
  1. FORTEO [Suspect]
     Active Substance: TERIPARATIDE

REACTIONS (7)
  - Confusional state [None]
  - Asthenia [None]
  - Back pain [None]
  - Decreased appetite [None]
  - Pruritus [None]
  - Pain in jaw [None]
  - Dizziness [None]

NARRATIVE: CASE EVENT DATE: 20150106
